FAERS Safety Report 7763452-5 (Version None)
Quarter: 2011Q3

REPORT INFORMATION
  Report Type: 
  Country: None (occurrence: None)
  Receive Date: 20110920
  Receipt Date: 20110914
  Transmission Date: 20111222
  Serious: Yes (Hospitalization)
  Sender: FDA-Public Use
  Company Number: JP-PFIZER INC-2011194245

PATIENT
  Age: 68 Year
  Sex: Female
  Weight: 38 kg

DRUGS (2)
  1. ZOLOFT [Suspect]
     Indication: DEPRESSION
     Dosage: 25 MG DAILY
     Route: 048
     Dates: start: 20110808, end: 20110819
  2. TETRAMIDE [Suspect]
     Indication: DEPRESSION
     Dosage: 10 MG, 2X/DAY
     Route: 048
     Dates: start: 20110726, end: 20110819

REACTIONS (9)
  - ALANINE AMINOTRANSFERASE INCREASED [None]
  - BLOOD ALKALINE PHOSPHATASE INCREASED [None]
  - BLOOD LACTATE DEHYDROGENASE INCREASED [None]
  - ASPARTATE AMINOTRANSFERASE INCREASED [None]
  - LIVER DISORDER [None]
  - PYREXIA [None]
  - INFLAMMATION [None]
  - SEROTONIN SYNDROME [None]
  - GAMMA-GLUTAMYLTRANSFERASE INCREASED [None]
